FAERS Safety Report 17525846 (Version 2)
Quarter: 2020Q3

REPORT INFORMATION
  Report Type: Spontaneous
  Country: BR (occurrence: BR)
  Receive Date: 20200311
  Receipt Date: 20200707
  Transmission Date: 20201102
  Serious: Yes (Hospitalization, Other)
  Sender: FDA-Public Use
  Company Number: BR-VISTAPHARM, INC.-VER202003-000508

PATIENT
  Age: 54 Year
  Sex: Female

DRUGS (2)
  1. PHENYTOIN. [Suspect]
     Active Substance: PHENYTOIN
     Indication: METASTASES TO CENTRAL NERVOUS SYSTEM
     Dosage: UNKNOWN
  2. WARFARIN [Suspect]
     Active Substance: WARFARIN
     Indication: PRODUCT USED FOR UNKNOWN INDICATION
     Dosage: UNKNOWN

REACTIONS (3)
  - Treatment failure [Recovered/Resolved]
  - Deep vein thrombosis [Recovered/Resolved]
  - Drug interaction [Recovered/Resolved]
